FAERS Safety Report 12061849 (Version 1)
Quarter: 2016Q1

REPORT INFORMATION
  Report Type: Spontaneous
  Country: US (occurrence: US)
  Receive Date: 20160210
  Receipt Date: 20160210
  Transmission Date: 20160526
  Serious: Yes (Hospitalization, Other)
  Sender: FDA-Public Use
  Company Number: US-TAKEDA-2016TUS002197

PATIENT
  Age: 76 Year
  Sex: Female
  Weight: 81.18 kg

DRUGS (1)
  1. ULORIC [Suspect]
     Active Substance: FEBUXOSTAT
     Indication: GOUT
     Dosage: 40 MG, UNK
     Route: 048
     Dates: start: 2014

REACTIONS (4)
  - Alopecia [Not Recovered/Not Resolved]
  - Weight decreased [Recovered/Resolved]
  - Sepsis [Recovered/Resolved]
  - Nephrolithiasis [Not Recovered/Not Resolved]

NARRATIVE: CASE EVENT DATE: 201506
